FAERS Safety Report 6406699-2 (Version None)
Quarter: 2009Q4

REPORT INFORMATION
  Report Type: 
  Country: None (occurrence: None)
  Receive Date: 20091020
  Receipt Date: 20091009
  Transmission Date: 20100525
  Serious: Yes (Death)
  Sender: FDA-Public Use
  Company Number: GB-RANBAXY-2009RR-28534

PATIENT
  Age: 65 Year
  Sex: Male
  Weight: 80 kg

DRUGS (1)
  1. PARACETAMOL [Suspect]
     Indication: INFLUENZA LIKE ILLNESS

REACTIONS (3)
  - ACUTE HEPATIC FAILURE [None]
  - HEPATITIS FULMINANT [None]
  - OVERDOSE [None]
